FAERS Safety Report 6461713-3 (Version None)
Quarter: 2009Q4

REPORT INFORMATION
  Report Type: 
  Country: None (occurrence: None)
  Receive Date: 20091130
  Receipt Date: 20091125
  Transmission Date: 20100525
  Serious: Yes (Hospitalization)
  Sender: FDA-Public Use
  Company Number: FR-BRISTOL-MYERS SQUIBB COMPANY-14871545

PATIENT
  Age: 38 Year
  Sex: Male

DRUGS (3)
  1. REYATAZ [Suspect]
     Indication: ANTIRETROVIRAL THERAPY
     Route: 048
     Dates: start: 20090305, end: 20090528
  2. TRUVADA [Suspect]
     Indication: ANTIRETROVIRAL THERAPY
     Dosage: 1 DF = 200MG/245MG TABS
     Route: 048
     Dates: start: 20090305
  3. NORVIR [Suspect]
     Indication: ANTIRETROVIRAL THERAPY
     Dosage: 1 DF = 1 TAB
     Route: 048
     Dates: start: 20090305

REACTIONS (1)
  - CENTRAL OBESITY [None]
